FAERS Safety Report 16853496 (Version 8)
Quarter: 2020Q2

REPORT INFORMATION
  Report Type: Report from Study
  Country: None (occurrence: NL)
  Receive Date: 20190926
  Receipt Date: 20200621
  Transmission Date: 20200713
  Serious: Yes (Hospitalization)
  Sender: FDA-Public Use
  Company Number: NL-ABBVIE-19K-114-2936113-00

PATIENT
  Age: 71 Year
  Sex: Male

DRUGS (9)
  1. ROPINIROLE. [Concomitant]
     Active Substance: ROPINIROLE
     Indication: PRODUCT USED FOR UNKNOWN INDICATION
  2. MADOPAR HBS [Concomitant]
     Active Substance: BENSERAZIDE HYDROCHLORIDE\LEVODOPA
     Indication: PRODUCT USED FOR UNKNOWN INDICATION
  3. DUODOPA [Suspect]
     Active Substance: CARBIDOPA\LEVODOPA
     Dosage: DOSE INCREASED
     Route: 050
     Dates: start: 201909
  4. MOVICOLON [Concomitant]
     Active Substance: POLYETHYLENE GLYCOL 3350\POTASSIUM CHLORIDE\SODIUM BICARBONATE\SODIUM CHLORIDE
     Indication: ABNORMAL FAECES
  5. DUODOPA [Suspect]
     Active Substance: CARBIDOPA\LEVODOPA
     Dosage: MD 8.5 CD 4.9 ED 2.5?DOSE DECREASED
     Route: 050
  6. BISACODYL. [Concomitant]
     Active Substance: BISACODYL
     Indication: ABNORMAL FAECES
  7. DUODOPA [Suspect]
     Active Substance: CARBIDOPA\LEVODOPA
     Indication: PARKINSON^S DISEASE
     Dosage: MD 8.5 CD 5 ED 1.5
     Route: 050
     Dates: start: 20190827, end: 2019
  8. MADOPAR [Concomitant]
     Active Substance: BENSERAZIDE HYDROCHLORIDE\LEVODOPA
     Indication: PRODUCT USED FOR UNKNOWN INDICATION
  9. DUODOPA [Suspect]
     Active Substance: CARBIDOPA\LEVODOPA
     Dosage: MD 9.0 CD 4.9 ED 2.5
     Route: 050
     Dates: start: 2020

REACTIONS (20)
  - Memory impairment [Not Recovered/Not Resolved]
  - Muscle rigidity [Not Recovered/Not Resolved]
  - Stoma site erythema [Recovered/Resolved]
  - C-reactive protein abnormal [Recovered/Resolved]
  - Bacterial infection [Recovered/Resolved]
  - Pain [Recovering/Resolving]
  - On and off phenomenon [Unknown]
  - Limb discomfort [Not Recovered/Not Resolved]
  - Nausea [Recovering/Resolving]
  - On and off phenomenon [Recovered/Resolved]
  - Memory impairment [Not Recovered/Not Resolved]
  - Device issue [Not Recovered/Not Resolved]
  - Mental disorder [Not Recovered/Not Resolved]
  - Constipation [Unknown]
  - Dyskinesia [Not Recovered/Not Resolved]
  - Gait disturbance [Not Recovered/Not Resolved]
  - Bradykinesia [Not Recovered/Not Resolved]
  - Perforation [Recovered/Resolved]
  - Abdominal pain lower [Recovered/Resolved]
  - Therapeutic product effect delayed [Unknown]

NARRATIVE: CASE EVENT DATE: 2019
